FAERS Safety Report 7633731-0 (Version None)
Quarter: 2011Q3

REPORT INFORMATION
  Report Type: 
  Country: None (occurrence: None)
  Receive Date: 20110718
  Receipt Date: 20110707
  Transmission Date: 20111222
  Serious: Yes (Other)
  Sender: FDA-Public Use
  Company Number: ACO_25612_2011

PATIENT
  Age: 57 Year
  Sex: Female
  Weight: 95.2 kg

DRUGS (8)
  1. LYNESTA (ESZOPICLONE) [Concomitant]
  2. AMPYRA [Suspect]
     Indication: GAIT DISTURBANCE
     Dosage: 10MG, BID, ORAL
     Route: 048
     Dates: start: 20010301, end: 20110707
  3. REBIF [Concomitant]
  4. TRAZODONE HCL [Concomitant]
  5. PROVIGIL [Concomitant]
  6. GABAPENTIN [Concomitant]
  7. VITAMIN NOS (VITAMINS NOS) [Concomitant]
  8. CUMBALTA (DULOXETINE HYDROCHLORIDE) [Concomitant]

REACTIONS (1)
  - CONVULSION [None]
